FAERS Safety Report 6740077-1 (Version None)
Quarter: 2010Q2

REPORT INFORMATION
  Report Type: 
  Country: None (occurrence: None)
  Receive Date: 20100525
  Receipt Date: 20100304
  Transmission Date: 20101027
  Serious: No
  Sender: FDA-Public Use
  Company Number: A0844938A

PATIENT
  Age: 71 Year
  Sex: Female

DRUGS (5)
  1. BACTROBAN [Suspect]
     Dosage: 1G SINGLE DOSE
     Route: 045
     Dates: start: 20100216
  2. TEGRETOL [Concomitant]
  3. PROTONIX [Concomitant]
  4. ZETIA [Concomitant]
  5. ZOLPIDEM [Concomitant]

REACTIONS (6)
  - ANXIETY [None]
  - EYE PRURITUS [None]
  - HEADACHE [None]
  - HYPERSENSITIVITY [None]
  - NASAL DISCOMFORT [None]
  - PHARYNGEAL DISORDER [None]
